FAERS Safety Report 14368697 (Version 1)
Quarter: 2018Q1

REPORT INFORMATION
  Report Type: Spontaneous
  Country: US (occurrence: US)
  Receive Date: 20180109
  Receipt Date: 20180109
  Transmission Date: 20180509
  Serious: No
  Sender: FDA-Public Use
  Company Number: US-PFIZER INC-2017514618

PATIENT
  Age: 59 Year
  Sex: Male

DRUGS (6)
  1. NORCO [Concomitant]
     Active Substance: ACETAMINOPHEN\HYDROCODONE BITARTRATE
     Indication: PAIN
     Dosage: UNK, AS NEEDED (1 TABLET EVERY 4 HOURS AS NEEDED FOR MODERATE PAIN FOR UP TO 10 DAYS)
     Route: 048
     Dates: start: 201711
  2. ATORVASTATIN CALCIUM. [Suspect]
     Active Substance: ATORVASTATIN CALCIUM
     Dosage: 40 MG, 1X/DAY (EVERY EVENING)
     Route: 048
     Dates: start: 20171105, end: 20171116
  3. ZESTRIL [Concomitant]
     Active Substance: LISINOPRIL
     Dosage: 2.5 MG, DAILY (FOR 30 DAYS)
     Route: 048
     Dates: start: 201711
  4. GLUCOPHAGE XR [Concomitant]
     Active Substance: METFORMIN HYDROCHLORIDE
     Dosage: 500 MG, 2X/DAY (24 HR TABLET)
     Route: 048
     Dates: start: 201711
  5. JARDIANCE [Concomitant]
     Active Substance: EMPAGLIFLOZIN
     Dosage: 10 MG, DAILY (FOR 30 DAYS)
     Route: 048
     Dates: start: 201711
  6. PRINIVIL [Concomitant]
     Active Substance: LISINOPRIL
     Dosage: 2.5 MG, DAILY (FOR 30 DAYS)
     Route: 048
     Dates: start: 201711

REACTIONS (4)
  - Depression [Unknown]
  - Amnesia [Unknown]
  - Confusional state [Unknown]
  - Intentional product misuse [Unknown]

NARRATIVE: CASE EVENT DATE: 201711
